FAERS Safety Report 5014871-1 (Version None)
Quarter: 2006Q2

REPORT INFORMATION
  Report Type: 
  Country: None (occurrence: None)
  Receive Date: 20060414
  Receipt Date: 20060117
  Transmission Date: 20061013
  Serious: No
  Sender: FDA-Public Use
  Company Number: 2006SP000319

PATIENT
  Age: 53 Year
  Sex: Female
  Weight: 56.6996 kg

DRUGS (7)
  1. LUNESTA [Suspect]
     Indication: INSOMNIA
     Dosage: 2 MG;HS;ORAL
     Route: 048
     Dates: start: 20051213, end: 20051227
  2. PRILOSEC [Concomitant]
  3. AMLODIPINE BESYLATE [Concomitant]
  4. EVISTA [Concomitant]
  5. ACTONEL [Concomitant]
  6. ALLEGRA [Concomitant]
  7. SINGULAIR [Concomitant]

REACTIONS (1)
  - DYSGEUSIA [None]
